FAERS Safety Report 20651510 (Version 2)
Quarter: 2022Q2

REPORT INFORMATION
  Report Type: Spontaneous
  Country: US (occurrence: None)
  Receive Date: 20220330
  Receipt Date: 20220412
  Transmission Date: 20220721
  Serious: No
  Sender: FDA-Public Use
  Company Number: 2022A113487

PATIENT
  Age: 30884 Day
  Sex: Female
  Weight: 107.5 kg

DRUGS (1)
  1. SYMBICORT [Suspect]
     Active Substance: BUDESONIDE\FORMOTEROL FUMARATE DIHYDRATE
     Indication: Asthma
     Dosage: 80/4.5 MCG TWO TIMES A DAY
     Route: 055

REACTIONS (4)
  - Wheezing [Unknown]
  - Product use issue [Unknown]
  - Device malfunction [Unknown]
  - Product packaging issue [Unknown]

NARRATIVE: CASE EVENT DATE: 20220311
